FAERS Safety Report 15285325 (Version 1)
Quarter: 2018Q3

REPORT INFORMATION
  Report Type: Spontaneous
  Country: US (occurrence: US)
  Receive Date: 20180802
  Receipt Date: 20180802
  Transmission Date: 20181010
  Serious: Yes (Hospitalization)
  Sender: FDA-Public Use
  Company Number: None

PATIENT
  Age: 40 Year
  Sex: Female

DRUGS (8)
  1. VENTOLIN [Concomitant]
     Active Substance: ALBUTEROL SULFATE
  2. LEVEMIR [Concomitant]
     Active Substance: INSULIN DETEMIR
  3. CIPROFLOXACIN. [Concomitant]
     Active Substance: CIPROFLOXACIN
  4. PULMOZYME [Suspect]
     Active Substance: DORNASE ALFA
     Indication: BRONCHIECTASIS
     Dosage: 2.4MG/2.5ML QD ORAL NEBULIZED
     Route: 048
     Dates: start: 20180307
  5. RORBAMYCIN [Concomitant]
  6. ALBUTEROL. [Concomitant]
     Active Substance: ALBUTEROL
  7. NOVOLOG [Concomitant]
     Active Substance: INSULIN ASPART
  8. SODIUM [Concomitant]
     Active Substance: SODIUM

REACTIONS (1)
  - Lung transplant [None]
